FAERS Safety Report 7774922-8 (Version None)
Quarter: 2011Q3

REPORT INFORMATION
  Report Type: 
  Country: None (occurrence: None)
  Receive Date: 20110923
  Receipt Date: 20110921
  Transmission Date: 20111222
  Serious: Yes (Life-Threatening, Hospitalization, Disabling)
  Sender: FDA-Public Use
  Company Number: US-B.I. PHARMACEUTICALS,INC./RIDGEFIELD-2011-BP-08955BP

PATIENT
  Sex: Female
  Weight: 101.6 kg

DRUGS (9)
  1. PREDNISONE [Concomitant]
     Dosage: 20 MG
  2. COLCHICINE [Concomitant]
     Dosage: 1.8 MG
  3. PRADAXA [Suspect]
     Indication: ATRIAL FIBRILLATION
     Dosage: 300 MG
     Dates: start: 20110201, end: 20110301
  4. AVAPRO [Concomitant]
     Dosage: 300 MG
  5. ZOCOR [Concomitant]
     Dosage: 20 MG
  6. LISINOPRIL [Concomitant]
     Dosage: 5 MG
  7. ALLOPURINOL [Concomitant]
     Dosage: 100 MG
  8. PROTONIX [Concomitant]
     Dosage: 40 MG
  9. NIFEDIPINE ER XL [Concomitant]
     Dosage: 90 MG

REACTIONS (1)
  - CEREBROVASCULAR ACCIDENT [None]
